FAERS Safety Report 15663008 (Version 2)
Quarter: 2018Q4

REPORT INFORMATION
  Report Type: Spontaneous
  Country: JP (occurrence: JP)
  Receive Date: 20181127
  Receipt Date: 20181128
  Transmission Date: 20190205
  Serious: No
  Sender: FDA-Public Use
  Company Number: JP-LUPIN PHARMACEUTICALS INC.-2018-08094

PATIENT
  Age: 72 Year
  Sex: Male

DRUGS (5)
  1. SILODOSIN. [Concomitant]
     Active Substance: SILODOSIN
     Indication: PROSTATOMEGALY
     Dosage: UNK (MORE THAN 1 YEAR)
     Route: 065
  2. LEVETIRACETAM. [Suspect]
     Active Substance: LEVETIRACETAM
     Indication: PARTIAL SEIZURES
     Dosage: 500 MG, QD
     Route: 065
  3. CERNITIN POLLEN EXTRACTS [Concomitant]
     Indication: PROSTATOMEGALY
     Dosage: UNK (MORE THAN 1 YEAR)
     Route: 065
  4. LEVETIRACETAM. [Suspect]
     Active Substance: LEVETIRACETAM
     Dosage: 250 MG, QD
     Route: 065
  5. ALFACALCIDOL [Concomitant]
     Active Substance: ALFACALCIDOL
     Indication: OSTEOPOROSIS
     Dosage: UNK (MORE THAN 1 YEAR)
     Route: 065

REACTIONS (1)
  - Dizziness [Recovered/Resolved]
